FAERS Safety Report 13112671 (Version 1)
Quarter: 2017Q1

REPORT INFORMATION
  Report Type: Report from Study
  Country: US (occurrence: US)
  Receive Date: 20170113
  Receipt Date: 20170113
  Transmission Date: 20170428
  Serious: Yes (Life-Threatening, Hospitalization)
  Sender: FDA-Public Use
  Company Number: US-ROCHE-1871228

PATIENT
  Age: 38 Year
  Sex: Female

DRUGS (12)
  1. ADRIAMYCIN [Suspect]
     Active Substance: DOXORUBICIN HYDROCHLORIDE
     Indication: HODGKIN^S DISEASE
     Dosage: DOSE: 25MG/M2?MOST RECENT DOSE PRIOR TO EVENT: 07/APR/2011
     Route: 042
     Dates: start: 20101228
  2. BLEOMYCIN [Suspect]
     Active Substance: BLEOMYCIN SULFATE
     Indication: HODGKIN^S DISEASE
     Dosage: DOSE: 10UNITS /M2?MOST RECENT DOSE PRIOR TO EVENT: 07/APR/2011
     Route: 042
     Dates: start: 20101228
  3. DEXAMETHASON [Concomitant]
     Active Substance: DEXAMETHASONE
     Route: 048
  4. BEVACIZUMAB [Suspect]
     Active Substance: BEVACIZUMAB
     Indication: HODGKIN^S DISEASE
     Dosage: DOSE: 10 MG/KL?MOST RECENT DOSE PRIOR TO EVENT: 07/APR/2011
     Route: 042
     Dates: start: 20101228
  5. AVASTIN [Concomitant]
     Active Substance: BEVACIZUMAB
     Route: 048
  6. LAMICTAL [Concomitant]
     Active Substance: LAMOTRIGINE
     Route: 048
  7. VINBLASTINE ^ROCHE^ [Suspect]
     Active Substance: VINBLASTINE
     Indication: HODGKIN^S DISEASE
     Dosage: DOSE: 6MG/M2?MOST RECENT DOSE PRIOR TO EVENT: 07/APR/2011
     Route: 042
     Dates: start: 20101228
  8. PRISTIQ EXTENDED-RELEASE [Concomitant]
     Active Substance: DESVENLAFAXINE SUCCINATE
     Route: 048
  9. ADVIL [Concomitant]
     Active Substance: IBUPROFEN
     Route: 048
  10. DACARBAZINE. [Suspect]
     Active Substance: DACARBAZINE
     Indication: HODGKIN^S DISEASE
     Dosage: DOSE: 375MG/M2?MOST RECENT DOSE PRIOR TO EVENT: 07/APR/2011
     Route: 042
     Dates: start: 20101228
  11. ZYPREXA [Concomitant]
     Active Substance: OLANZAPINE
     Route: 048
  12. ZOFRAN [Concomitant]
     Active Substance: ONDANSETRON HYDROCHLORIDE
     Route: 048

REACTIONS (16)
  - Fluid overload [None]
  - Infection [None]
  - Obliterative bronchiolitis [None]
  - Agitation [None]
  - Hypoxia [Recovered/Resolved]
  - Pneumonia [None]
  - Hyperhidrosis [None]
  - Headache [None]
  - Febrile neutropenia [None]
  - Respiratory distress [None]
  - Fatigue [None]
  - Hypertension [None]
  - Pulmonary oedema [None]
  - Pulmonary alveolar haemorrhage [None]
  - Myalgia [None]
  - Toxicity to various agents [None]

NARRATIVE: CASE EVENT DATE: 20110421
